FAERS Safety Report 6848286-8 (Version None)
Quarter: 2010Q3

REPORT INFORMATION
  Report Type: 
  Country: None (occurrence: None)
  Receive Date: 20100716
  Receipt Date: 20100630
  Transmission Date: 20110219
  Serious: Yes (Other)
  Sender: FDA-Public Use
  Company Number: JP-JNJFOC-20100602986

PATIENT
  Sex: Female

DRUGS (3)
  1. FLORID ORAL GEL [Suspect]
     Route: 049
  2. FLORID ORAL GEL [Suspect]
     Indication: ORAL CANDIDIASIS
     Dosage: 5G 4 TIMES IN 1 DAY
     Route: 049
  3. WARFARIN POTASSIUM [Interacting]
     Indication: PRODUCT USED FOR UNKNOWN INDICATION
     Route: 048

REACTIONS (4)
  - DRUG INTERACTION [None]
  - HAEMORRHAGE SUBCUTANEOUS [None]
  - INTERNATIONAL NORMALISED RATIO INCREASED [None]
  - MOUTH HAEMORRHAGE [None]
